FAERS Safety Report 5370341-2 (Version None)
Quarter: 2007Q2

REPORT INFORMATION
  Report Type: 
  Country: None (occurrence: None)
  Receive Date: 20070625
  Receipt Date: 20070625
  Transmission Date: 20071010
  Serious: Yes (Hospitalization)
  Sender: FDA-Public Use
  Company Number: None

PATIENT
  Age: 48 Year
  Sex: Male
  Weight: 60.782 kg

DRUGS (3)
  1. ALIMTA [Suspect]
     Dosage: IV/500MG/M2 Q3 WKS
     Route: 042
     Dates: end: 20070529
  2. ERBITUX [Suspect]
     Dosage: IV/250MG/M2 WKLY
     Route: 042
     Dates: end: 20070529
  3. RADIATION [Suspect]
     Dates: end: 20070606

REACTIONS (2)
  - DRUG TOXICITY [None]
  - RENAL FAILURE ACUTE [None]
